FAERS Safety Report 14650757 (Version 1)
Quarter: 2018Q1

REPORT INFORMATION
  Report Type: Spontaneous
  Country: JP (occurrence: JP)
  Receive Date: 20180316
  Receipt Date: 20180316
  Transmission Date: 20180509
  Serious: Yes (Life-Threatening, Hospitalization)
  Sender: FDA-Public Use
  Company Number: GXJP2018JP000776

PATIENT
  Age: 23 Year
  Sex: Female
  Weight: 38.6 kg

DRUGS (3)
  1. ISONIAZID. [Suspect]
     Active Substance: ISONIAZID
     Indication: TUBERCULOSIS
     Dosage: ADMINISTRATION AFTER SURGERY
     Route: 048
  2. LEVOFLOXACIN MESYLATE [Suspect]
     Active Substance: LEVOFLOXACIN
     Indication: TUBERCULOSIS
     Dosage: ADMINISTRATION PERIOD( 16 DAYS AFTER POSTOPERATIVE ~)
     Route: 048
  3. RIFAMPICIN [Suspect]
     Active Substance: RIFAMPIN
     Indication: TUBERCULOSIS
     Dosage: ADMINISTRATION PERIOD(POSTOPERATIVE ~ 15 DAYS AFTER POSTOPERATIVE)
     Route: 048

REACTIONS (4)
  - Cardiac arrest [Recovered/Resolved]
  - Pneumonia [Recovered/Resolved]
  - Hepatic function abnormal [Recovered/Resolved]
  - Septic shock [Recovered/Resolved]
